FAERS Safety Report 8014139-5 (Version None)
Quarter: 2011Q4

REPORT INFORMATION
  Report Type: 
  Country: None (occurrence: None)
  Receive Date: 20111229
  Receipt Date: 20111220
  Transmission Date: 20120403
  Serious: Yes (Disabling)
  Sender: FDA-Public Use
  Company Number: DK-ASTRAZENECA-2011SE77214

PATIENT
  Age: 63 Year
  Sex: Female

DRUGS (5)
  1. FENTANYL [Suspect]
     Indication: GENERAL ANAESTHESIA
     Dates: start: 20100114
  2. NAROPIN [Suspect]
     Indication: NERVE BLOCK
     Dates: start: 20100114
  3. LIDOKAIN ^SAD^ [Suspect]
     Indication: NERVE BLOCK
     Dates: start: 20100114
  4. METAOXEDRIN ^DAK^ [Concomitant]
  5. PROPOFOL [Suspect]
     Indication: GENERAL ANAESTHESIA
     Route: 042
     Dates: start: 20100114

REACTIONS (13)
  - VIITH NERVE INJURY [None]
  - MUSCULAR WEAKNESS [None]
  - DYSPNOEA [None]
  - PARAESTHESIA [None]
  - MEMORY IMPAIRMENT [None]
  - SUFFOCATION FEELING [None]
  - SALIVARY HYPERSECRETION [None]
  - SPEECH DISORDER [None]
  - EXTRAOCULAR MUSCLE PARESIS [None]
  - TONGUE PARALYSIS [None]
  - VTH NERVE INJURY [None]
  - HEADACHE [None]
  - HYPERAESTHESIA [None]
